FAERS Safety Report 7967702-1 (Version None)
Quarter: 2011Q4

REPORT INFORMATION
  Report Type: 
  Country: None (occurrence: None)
  Receive Date: 20111122
  Receipt Date: 20110616
  Transmission Date: 20120403
  Serious: No
  Sender: FDA-Public Use
  Company Number: PHHY2011US54694

PATIENT
  Age: 72 Year
  Sex: Female

DRUGS (6)
  1. METOPROLOL TARTRATE [Concomitant]
  2. PAXIL [Suspect]
  3. LIPITOR [Concomitant]
  4. LISINOPRIL [Concomitant]
  5. GILENYA [Suspect]
     Indication: MULTIPLE SCLEROSIS
     Dosage: 0.5MG, DAILY, ORAL
     Route: 048
     Dates: start: 20110527
  6. LEVOXYL [Concomitant]

REACTIONS (5)
  - CYANOPSIA [None]
  - CHEST DISCOMFORT [None]
  - SCIATICA [None]
  - SOMNOLENCE [None]
  - FATIGUE [None]
